FAERS Safety Report 23580331 (Version 2)
Quarter: 2024Q1

REPORT INFORMATION
  Report Type: Other
  Country: US (occurrence: None)
  Receive Date: 20240229
  Receipt Date: 20240307
  Transmission Date: 20240410
  Serious: Yes (Death)
  Sender: FDA-Public Use
  Company Number: US-ROCHE-3518047

PATIENT
  Age: 84 Year
  Sex: Female

DRUGS (18)
  1. ACTEMRA [Suspect]
     Active Substance: TOCILIZUMAB
     Indication: Giant cell arteritis
     Dosage: STRENGTH: 162 MG/0.9 ML
     Route: 058
  2. ACTEMRA [Suspect]
     Active Substance: TOCILIZUMAB
  3. ACTEMRA [Suspect]
     Active Substance: TOCILIZUMAB
  4. FAMOTIDINE [Concomitant]
     Active Substance: FAMOTIDINE
     Route: 048
  5. PREDNISONE [Concomitant]
     Active Substance: PREDNISONE
     Route: 048
  6. FLECAINIDE [Concomitant]
     Active Substance: FLECAINIDE
     Route: 048
  7. FOLIC ACID [Concomitant]
     Active Substance: FOLIC ACID
     Route: 048
  8. METHOTREXATE [Concomitant]
     Active Substance: METHOTREXATE
     Route: 048
  9. ASPIRIN [Concomitant]
     Active Substance: ASPIRIN
     Route: 048
  10. CALCIUM CITRATE\CHOLECALCIFEROL [Concomitant]
     Active Substance: CALCIUM CITRATE\CHOLECALCIFEROL
  11. POTASSIUM SULPHATE [Concomitant]
  12. FUROSEMIDE [Concomitant]
     Active Substance: FUROSEMIDE
     Route: 048
  13. METOPROLOL TARTRATE [Concomitant]
     Active Substance: METOPROLOL TARTRATE
     Route: 048
  14. WARFARIN [Concomitant]
     Active Substance: WARFARIN
     Route: 048
  15. NORVASC [Concomitant]
     Active Substance: AMLODIPINE BESYLATE
     Route: 048
  16. DIGOXIN [Concomitant]
     Active Substance: DIGOXIN
     Route: 048
  17. RAMIPRIL [Concomitant]
     Active Substance: RAMIPRIL
     Route: 048
  18. LIPITOR [Concomitant]
     Active Substance: ATORVASTATIN CALCIUM
     Route: 048

REACTIONS (1)
  - Death [Fatal]

NARRATIVE: CASE EVENT DATE: 20240228
